FAERS Safety Report 7342479-1 (Version None)
Quarter: 2011Q1

REPORT INFORMATION
  Report Type: 
  Country: None (occurrence: None)
  Receive Date: 20110310
  Receipt Date: 20110307
  Transmission Date: 20110831
  Serious: No
  Sender: FDA-Public Use
  Company Number: US-PFIZER INC-2011050644

PATIENT
  Sex: Male

DRUGS (4)
  1. MONTELUKAST SODIUM [Concomitant]
     Indication: HYPERSENSITIVITY
     Dosage: 10 MG, UNK
     Route: 048
  2. ADVIL CONGESTION RELIEF [Suspect]
     Indication: NASAL CONGESTION
  3. XYZAL [Concomitant]
     Indication: HYPERSENSITIVITY
     Dosage: 5 MG, 1X/DAY
     Route: 048
  4. ADVIL CONGESTION RELIEF [Suspect]
     Indication: NASAL OEDEMA
     Dosage: 200 MG, 1X/DAY
     Route: 048
     Dates: start: 20110201, end: 20110201

REACTIONS (1)
  - DRUG INEFFECTIVE [None]
